FAERS Safety Report 13068183 (Version 1)
Quarter: 2016Q4

REPORT INFORMATION
  Report Type: Spontaneous
  Country: US (occurrence: US)
  Receive Date: 20161228
  Receipt Date: 20161228
  Transmission Date: 20170207
  Serious: Yes (Life-Threatening)
  Sender: FDA-Public Use
  Company Number: US-AUROBINDO-AUR-APL-2014-03059

PATIENT
  Age: 9 Year
  Sex: Female

DRUGS (1)
  1. CLINDAMYCIN HYDROCHLORIDE CAPSULES USP 150MG [Suspect]
     Active Substance: CLINDAMYCIN HYDROCHLORIDE
     Indication: PRODUCT USED FOR UNKNOWN INDICATION
     Dosage: UNK UNK,UNK,
     Route: 065

REACTIONS (15)
  - Gas gangrene [Recovering/Resolving]
  - Abdominal pain upper [Recovering/Resolving]
  - Vomiting [Recovering/Resolving]
  - Sepsis [Recovering/Resolving]
  - Iatrogenic injury [None]
  - Clostridium difficile colitis [None]
  - Muscle necrosis [None]
  - Leg amputation [None]
  - Nausea [Recovering/Resolving]
  - Thrombosis [None]
  - Diarrhoea [Recovering/Resolving]
  - Pyrexia [Recovering/Resolving]
  - Septic shock [None]
  - Colitis ischaemic [Recovering/Resolving]
  - Syncope [Recovering/Resolving]
